FAERS Safety Report 10228010 (Version 1)
Quarter: 2014Q2

REPORT INFORMATION
  Report Type: Spontaneous
  Country: GB (occurrence: GB)
  Receive Date: 20140610
  Receipt Date: 20140610
  Transmission Date: 20141212
  Serious: Yes (Hospitalization, Other)
  Sender: FDA-Public Use
  Company Number: GB-ABBVIE-14P-167-1246123-00

PATIENT
  Age: 46 Year
  Sex: Female

DRUGS (3)
  1. HUMIRA [Suspect]
     Indication: PRODUCT USED FOR UNKNOWN INDICATION
     Dates: start: 200811, end: 201303
  2. HUMIRA [Suspect]
     Dates: start: 201308
  3. HUMIRA [Suspect]

REACTIONS (5)
  - Bedridden [Recovered/Resolved]
  - Arthropathy [Recovered/Resolved]
  - Infection [Recovered/Resolved]
  - Ear infection [Recovered/Resolved]
  - Dry gangrene [Recovered/Resolved]
